FAERS Safety Report 10502873 (Version 1)
Quarter: 2014Q4

REPORT INFORMATION
  Report Type: Spontaneous
  Country: US (occurrence: US)
  Receive Date: 20141007
  Receipt Date: 20141007
  Transmission Date: 20150528
  Serious: Yes (Death, Life-Threatening, Other)
  Sender: FDA-Public Use
  Company Number: US-ASTRAZENECA-2014SE73072

PATIENT
  Age: 78 Year
  Sex: Male

DRUGS (1)
  1. SYMBICORT [Suspect]
     Active Substance: BUDESONIDE\FORMOTEROL FUMARATE DIHYDRATE
     Indication: CHRONIC OBSTRUCTIVE PULMONARY DISEASE
     Route: 055
     Dates: end: 2014

REACTIONS (4)
  - Myocardial infarction [Unknown]
  - Metastases to pancreas [Fatal]
  - Lung neoplasm malignant [Fatal]
  - Metastases to stomach [Fatal]

NARRATIVE: CASE EVENT DATE: 2014
